FAERS Safety Report 21713340 (Version 1)
Quarter: 2022Q4

REPORT INFORMATION
  Report Type: Spontaneous
  Country: US (occurrence: US)
  Receive Date: 20221212
  Receipt Date: 20221212
  Transmission Date: 20230113
  Serious: Yes (Other)
  Sender: FDA-Public Use
  Company Number: US-GSKCCFUS-Case-01574428_AE-88981

PATIENT

DRUGS (1)
  1. ZEJULA [Suspect]
     Active Substance: NIRAPARIB
     Indication: Product used for unknown indication
     Dosage: 200 MG, QD
     Route: 048
     Dates: start: 20180324

REACTIONS (6)
  - Loss of consciousness [Unknown]
  - Nausea [Unknown]
  - Dizziness [Unknown]
  - Pain in extremity [Recovered/Resolved]
  - Condition aggravated [Recovered/Resolved]
  - Urinary incontinence [Unknown]
